FAERS Safety Report 7988274-1 (Version None)
Quarter: 2011Q4

REPORT INFORMATION
  Report Type: 
  Country: None (occurrence: None)
  Receive Date: 20111216
  Receipt Date: 20111213
  Transmission Date: 20120403
  Serious: Yes (Hospitalization)
  Sender: FDA-Public Use
  Company Number: US-AMGEN-USACT2011026199

PATIENT
  Age: 83 Year
  Sex: Male
  Weight: 90 kg

DRUGS (11)
  1. ALBUTEROL [Concomitant]
     Indication: CHRONIC OBSTRUCTIVE PULMONARY DISEASE
     Dosage: UNK
     Route: 055
     Dates: start: 20091015
  2. SIMVASTATIN [Concomitant]
     Indication: CEREBROVASCULAR ACCIDENT
     Dosage: 20 MG, UNK
     Route: 048
     Dates: start: 20091009
  3. VITAMIN D [Concomitant]
     Indication: OSTEOPOROSIS
     Dosage: UNK
     Route: 048
     Dates: start: 20050128
  4. DENOSUMAB [Suspect]
     Indication: PROSTATE CANCER
     Dosage: 1 ML, UNK
     Dates: start: 20090527
  5. HYDROCHLOROTHIAZIDE [Concomitant]
     Indication: OEDEMA PERIPHERAL
     Dosage: 25 MG, UNK
     Route: 048
     Dates: start: 20100413, end: 20101031
  6. MULTI-VITAMIN [Concomitant]
     Indication: VITAMIN SUPPLEMENTATION
     Dosage: UNK
     Route: 048
     Dates: start: 20090116
  7. AMLODIPINE [Concomitant]
     Indication: HYPERTENSION
     Dosage: 5 MG, UNK
     Route: 048
     Dates: start: 20100413
  8. OMNIPRED [Concomitant]
     Indication: EYE IRRITATION
     Dosage: UNK
     Route: 047
     Dates: start: 20080915
  9. ASPIRIN [Concomitant]
     Indication: PROPHYLAXIS
     Dosage: 325 MG, UNK
     Route: 048
     Dates: start: 20091008, end: 20101031
  10. TUMS 500 CALCIUM [Concomitant]
     Dosage: 750 MG, UNK
     Route: 048
     Dates: start: 20091015
  11. TYLENOL-500 [Concomitant]
     Indication: ARTHRITIS
     Dosage: UNK
     Route: 048
     Dates: start: 20081115

REACTIONS (1)
  - CEREBROVASCULAR ACCIDENT [None]
